FAERS Safety Report 9311076 (Version 1)
Quarter: 2013Q1

REPORT INFORMATION
  Report Type: Spontaneous
  Country: US (occurrence: None)
  Receive Date: 20130115
  Receipt Date: 20130115
  Transmission Date: 20140127
  Serious: Yes (Other)
  Sender: FDA-Public Use
  Company Number: VAL_01023_2012

PATIENT
  Sex: Female

DRUGS (6)
  1. METOPROLOL [Suspect]
     Indication: BLOOD PRESSURE
     Route: 048
     Dates: start: 201104
  2. EXFORGE [Suspect]
     Indication: BLOOD PRESSURE
     Route: 048
     Dates: start: 201112
  3. PAROXETINE HCL [Concomitant]
  4. KLOR-CON [Concomitant]
  5. FISH OIL [Concomitant]
  6. BABY ASPIRIN [Concomitant]

REACTIONS (8)
  - Malaise [None]
  - Aortic aneurysm [None]
  - Aortic valve incompetence [None]
  - Pulmonary hypertension [None]
  - Ejection fraction decreased [None]
  - Pleural effusion [None]
  - Atrial flutter [None]
  - Pulmonary oedema [None]
